FAERS Safety Report 16662672 (Version 1)
Quarter: 2019Q3

REPORT INFORMATION
  Report Type: Spontaneous
  Country: DE (occurrence: DE)
  Receive Date: 20190802
  Receipt Date: 20190802
  Transmission Date: 20191004
  Serious: No
  Sender: FDA-Public Use
  Company Number: DE-IPSEN-CABO-19018812

PATIENT
  Sex: Female

DRUGS (1)
  1. COMETRIQ [Suspect]
     Active Substance: CABOZANTINIB S-MALATE
     Indication: ADRENAL GLAND CANCER
     Dosage: 60 MG, UNK

REACTIONS (7)
  - Gastrooesophageal reflux disease [Unknown]
  - Dyspnoea [Unknown]
  - Thrombosis [Unknown]
  - Nausea [Unknown]
  - Fatigue [Unknown]
  - Pulmonary embolism [Unknown]
  - Off label use [Unknown]
